FAERS Safety Report 13833973 (Version 1)
Quarter: 2017Q3

REPORT INFORMATION
  Report Type: Spontaneous
  Country: US (occurrence: US)
  Receive Date: 20170804
  Receipt Date: 20170804
  Transmission Date: 20171127
  Serious: No
  Sender: FDA-Public Use
  Company Number: US-009507513-1708USA001756

PATIENT

DRUGS (1)
  1. SINEMET CR [Suspect]
     Active Substance: CARBIDOPA\LEVODOPA
     Dosage: 0.5 TABLET TWICE DAILY, STRENGTH : 25/100 (UNITS UNSPECIFIED)
     Route: 048

REACTIONS (2)
  - Wrong technique in product usage process [Unknown]
  - No adverse event [Unknown]

NARRATIVE: CASE EVENT DATE: 201705
